FAERS Safety Report 6688610-2 (Version None)
Quarter: 2010Q2

REPORT INFORMATION
  Report Type: 
  Country: None (occurrence: None)
  Receive Date: 20100420
  Receipt Date: 20100408
  Transmission Date: 20101027
  Serious: Yes (Other)
  Sender: FDA-Public Use
  Company Number: US-ELI_LILLY_AND_COMPANY-US201004002496

PATIENT
  Sex: Male

DRUGS (8)
  1. HUMATROPE [Suspect]
     Indication: GROWTH HORMONE DEFICIENCY
     Dosage: 0.6 MG, UNK
     Dates: start: 20060101, end: 20090101
  2. HUMATROPE [Suspect]
     Dosage: 0.3 MG, UNK
     Dates: start: 20090101, end: 20100405
  3. ENALAPRIL MALEATE [Concomitant]
  4. METANX [Concomitant]
  5. L-ARGININE HYDROCHLORIDE [Concomitant]
  6. ALOPURINOL [Concomitant]
  7. MULTI-VITAMIN [Concomitant]
  8. MINERALS NOS [Concomitant]

REACTIONS (20)
  - ARTHRALGIA [None]
  - ARTHROPATHY [None]
  - ASTHENIA [None]
  - BLOOD GLUCOSE INCREASED [None]
  - BLOOD PRESSURE INCREASED [None]
  - BURNING SENSATION [None]
  - CARPAL TUNNEL SYNDROME [None]
  - CHEST PAIN [None]
  - DIZZINESS [None]
  - DRUG LEVEL INCREASED [None]
  - FLUID RETENTION [None]
  - GLYCOSURIA [None]
  - GOUT [None]
  - HEADACHE [None]
  - HEPATIC CIRRHOSIS [None]
  - HYPERAMMONAEMIA [None]
  - MYALGIA [None]
  - OEDEMA PERIPHERAL [None]
  - PAIN IN EXTREMITY [None]
  - TRANSIENT ISCHAEMIC ATTACK [None]
